FAERS Safety Report 4816360-3 (Version None)
Quarter: 2005Q4

REPORT INFORMATION
  Report Type: 
  Country: None (occurrence: None)
  Receive Date: 20051031
  Receipt Date: 20050722
  Transmission Date: 20060501
  Serious: Yes (Hospitalization)
  Sender: FDA-Public Use
  Company Number: US-MERCK-0507USA03775

PATIENT
  Age: 66 Year
  Sex: Female

DRUGS (6)
  1. DOXYCYCLINE [Concomitant]
     Route: 065
  2. PROMETHAZINE [Concomitant]
     Route: 065
  3. TRAMADOLOR [Concomitant]
     Route: 065
     Dates: start: 20040524, end: 20040601
  4. ASPIRIN [Concomitant]
     Route: 065
  5. VIOXX [Suspect]
     Indication: OSTEOARTHRITIS
     Route: 048
     Dates: start: 20030612, end: 20040907
  6. ALTACE [Concomitant]
     Route: 065

REACTIONS (15)
  - BACTERIAL INFECTION [None]
  - BLOOD CHOLESTEROL INCREASED [None]
  - CEREBROVASCULAR DISORDER [None]
  - DEAFNESS NEUROSENSORY [None]
  - DEEP VEIN THROMBOSIS [None]
  - EXTRASYSTOLES [None]
  - EYELID PAIN [None]
  - HEARING IMPAIRED [None]
  - HYPERLIPIDAEMIA [None]
  - MENIERE'S DISEASE [None]
  - PAIN IN EXTREMITY [None]
  - POLYNEUROPATHY [None]
  - RECTAL HAEMORRHAGE [None]
  - THROMBOSIS [None]
  - VERTIGO [None]
